FAERS Safety Report 5463993-X (Version None)
Quarter: 2007Q3

REPORT INFORMATION
  Report Type: 
  Country: None (occurrence: None)
  Receive Date: 20070921
  Receipt Date: 20070907
  Transmission Date: 20080115
  Serious: Yes (Other)
  Sender: FDA-Public Use
  Company Number: CA-ELI_LILLY_AND_COMPANY-CA200708001635

PATIENT
  Age: 47 Year
  Sex: Female
  Weight: 50 kg

DRUGS (13)
  1. FOLIC ACID [Concomitant]
     Dates: start: 20061213
  2. VITAMIN B-12 [Concomitant]
     Route: 030
     Dates: start: 20061213
  3. PEMETREXED [Suspect]
     Indication: NON-SMALL CELL LUNG CANCER
     Dosage: 765 MG, UNK
     Route: 042
     Dates: start: 20061220, end: 20061220
  4. PEMETREXED [Suspect]
     Dosage: 765 MG, UNK
     Route: 042
     Dates: start: 20070110, end: 20070110
  5. PEMETREXED [Suspect]
     Dosage: 730 MG, UNK
     Route: 042
     Dates: start: 20070322
  6. PEMETREXED [Suspect]
     Dosage: 730 MG, UNK
     Route: 042
     Dates: start: 20070412, end: 20070412
  7. CISPLATIN [Suspect]
     Indication: NON-SMALL CELL LUNG CANCER
     Dosage: 38.25 MG, OTHER
     Route: 042
     Dates: start: 20061220, end: 20061222
  8. CISPLATIN [Suspect]
     Dosage: 38.25 MG, OTHER
     Route: 042
     Dates: start: 20070110, end: 20070112
  9. CISPLATIN [Suspect]
     Dosage: 110 MG, OTHER
     Route: 042
     Dates: start: 20070322
  10. CISPLATIN [Suspect]
     Dosage: 110 MG, OTHER
     Route: 042
     Dates: start: 20070412, end: 20070412
  11. *RADIATION [Suspect]
     Indication: NON-SMALL CELL LUNG CANCER
     Dosage: 66 UNK, UNK
     Dates: start: 20061220, end: 20070412
  12. CODEINE SUL TAB [Concomitant]
     Indication: COUGH
     Dates: start: 20061207
  13. FENTANYL [Concomitant]
     Indication: ODYNOPHAGIA
     Dates: start: 20070118

REACTIONS (1)
  - MYELODYSPLASTIC SYNDROME [None]
